FAERS Safety Report 21622504 (Version 1)
Quarter: 2022Q4

REPORT INFORMATION
  Report Type: Spontaneous
  Country: JP (occurrence: JP)
  Receive Date: 20221121
  Receipt Date: 20221121
  Transmission Date: 20230112
  Serious: Yes (Other)
  Sender: FDA-Public Use
  Company Number: JP-MLMSERVICE-20200305-2115648-1

PATIENT
  Age: 64 Year
  Sex: Male

DRUGS (3)
  1. DEXAMETHASONE [Suspect]
     Active Substance: DEXAMETHASONE
     Indication: Plasmablastic lymphoma
     Dosage: 40 MG ORALLY ON DAYS 1, 8, 15, AND 22
     Route: 048
     Dates: start: 2016, end: 201612
  2. BORTEZOMIB [Suspect]
     Active Substance: BORTEZOMIB
     Indication: Plasmablastic lymphoma
     Dosage: 1.3 MG/M2 SUBCUTANEOUSLY ON DAYS 1, 8, 15, AND 22
     Route: 058
     Dates: start: 2016, end: 201612
  3. CYCLOPHOSPHAMIDE [Suspect]
     Active Substance: CYCLOPHOSPHAMIDE
     Indication: Plasmablastic lymphoma
     Dosage: 300 MG/M2 ORALLY ON DAYS 1, 8, 15, AND 22
     Route: 048
     Dates: start: 2016, end: 201612

REACTIONS (4)
  - Neuropathy peripheral [Unknown]
  - Neurotoxicity [Unknown]
  - Drug intolerance [Unknown]
  - Therapy partial responder [Unknown]

NARRATIVE: CASE EVENT DATE: 20160101
